FAERS Safety Report 11813324 (Version 1)
Quarter: 2015Q4

REPORT INFORMATION
  Report Type: Spontaneous
  Country: US (occurrence: None)
  Receive Date: 20151208
  Receipt Date: 20151208
  Transmission Date: 20160305
  Serious: Yes (Hospitalization)
  Sender: FDA-Public Use
  Company Number: None

PATIENT
  Age: 79 Year
  Sex: Female
  Weight: 143.4 kg

DRUGS (14)
  1. NS [Concomitant]
     Active Substance: SODIUM CHLORIDE
  2. PROTONIX [Concomitant]
     Active Substance: PANTOPRAZOLE SODIUM
  3. MORPHINE [Concomitant]
     Active Substance: MORPHINE
  4. COUMADIN [Suspect]
     Active Substance: WARFARIN SODIUM
     Indication: ATRIAL FIBRILLATION
     Route: 048
  5. ALLOPURINOL. [Concomitant]
     Active Substance: ALLOPURINOL
  6. TOPROL XL [Concomitant]
     Active Substance: METOPROLOL SUCCINATE
  7. HUMALOG [Concomitant]
     Active Substance: INSULIN LISPRO
  8. COLACE [Concomitant]
     Active Substance: DOCUSATE SODIUM
  9. CLONAZEPAM. [Concomitant]
     Active Substance: CLONAZEPAM
  10. DEPAKOTE [Concomitant]
     Active Substance: DIVALPROEX SODIUM
  11. APAP [Concomitant]
     Active Substance: ACETAMINOPHEN
  12. NEURONTIN [Concomitant]
     Active Substance: GABAPENTIN
  13. ALBUTEROL. [Concomitant]
     Active Substance: ALBUTEROL
  14. GLUCGON [Concomitant]

REACTIONS (3)
  - Melaena [None]
  - Gastric ulcer [None]
  - Large intestine polyp [None]

NARRATIVE: CASE EVENT DATE: 20150307
